FAERS Safety Report 25729111 (Version 3)
Quarter: 2025Q3

REPORT INFORMATION
  Report Type: Report from Study
  Country: US (occurrence: US)
  Receive Date: 20250827
  Receipt Date: 20250929
  Transmission Date: 20251021
  Serious: Yes (Hospitalization, Other)
  Sender: UCB
  Company Number: US-UCBSA-2025052435

PATIENT
  Age: 34 Year
  Sex: Male
  Weight: 52 kg

DRUGS (2)
  1. FINTEPLA [Suspect]
     Active Substance: FENFLURAMINE
     Indication: Seizure
     Dates: start: 20250214, end: 2025
  2. FINTEPLA [Suspect]
     Active Substance: FENFLURAMINE
     Indication: Lennox-Gastaut syndrome
     Dosage: 5.9 MILLILITER, 2X/2 DAYS
     Dates: start: 2025

REACTIONS (3)
  - Tricuspid valve incompetence [Not Recovered/Not Resolved]
  - Pneumonia aspiration [Not Recovered/Not Resolved]
  - Anxiety [Unknown]

NARRATIVE: CASE EVENT DATE: 20250815
